FAERS Safety Report 14193303 (Version 4)
Quarter: 2017Q4

REPORT INFORMATION
  Report Type: Spontaneous
  Country: GB (occurrence: GB)
  Receive Date: 20171116
  Receipt Date: 20171120
  Transmission Date: 20180321
  Serious: Yes (Death, Other)
  Sender: FDA-Public Use
  Company Number: GB-CONCORDIA PHARMACEUTICALS INC.-GSH201602-001013

PATIENT
  Age: 61 Year
  Sex: Male

DRUGS (1)
  1. PREDNISOLONE. [Suspect]
     Active Substance: PREDNISOLONE
     Indication: RHEUMATOID ARTHRITIS

REACTIONS (5)
  - Immunosuppression [Not Recovered/Not Resolved]
  - Idiopathic pulmonary fibrosis [Fatal]
  - Respiratory failure [Fatal]
  - Mycobacterium chelonae infection [Not Recovered/Not Resolved]
  - Pneumonia [Fatal]
